FAERS Safety Report 15279485 (Version 1)
Quarter: 2018Q3

REPORT INFORMATION
  Report Type: Spontaneous
  Country: FR (occurrence: FR)
  Receive Date: 20180815
  Receipt Date: 20180815
  Transmission Date: 20181010
  Serious: Yes (Hospitalization)
  Sender: FDA-Public Use
  Company Number: FR-TEVA-2018-FR-941608

PATIENT
  Age: 62 Year
  Sex: Female
  Weight: 85 kg

DRUGS (2)
  1. DOXORUBICIN [Suspect]
     Active Substance: DOXORUBICIN
     Indication: ENDOMETRIAL SARCOMA
     Route: 042
     Dates: start: 20180607, end: 20180607
  2. DACARBAZINE. [Suspect]
     Active Substance: DACARBAZINE
     Indication: ENDOMETRIAL SARCOMA
     Route: 042
     Dates: start: 20180607

REACTIONS (2)
  - Pancytopenia [Recovering/Resolving]
  - Pyrexia [Recovered/Resolved]

NARRATIVE: CASE EVENT DATE: 20180621
